FAERS Safety Report 9155076 (Version 1)
Quarter: 2013Q1

REPORT INFORMATION
  Report Type: Report from Study
  Country: US (occurrence: US)
  Receive Date: 20130311
  Receipt Date: 20130311
  Transmission Date: 20140127
  Serious: No
  Sender: FDA-Public Use
  Company Number: US-ABBOTT-12P-163-1002816-00

PATIENT
  Age: 37 Year
  Sex: Female

DRUGS (3)
  1. LUPRON DEPOT [Suspect]
     Indication: UTERINE LEIOMYOMA
     Route: 030
     Dates: start: 20121019
  2. MULTIVITAMIN [Concomitant]
     Indication: PRODUCT USED FOR UNKNOWN INDICATION
     Dosage: DAILY
     Route: 048
  3. GENESIS [Concomitant]
     Indication: CONTRACEPTION
     Dosage: ONE DAILY
     Route: 048

REACTIONS (2)
  - Metrorrhagia [Not Recovered/Not Resolved]
  - Menstruation irregular [Not Recovered/Not Resolved]
